FAERS Safety Report 9303919 (Version 2)
Quarter: 2013Q2

REPORT INFORMATION
  Report Type: Spontaneous
  Country: US (occurrence: US)
  Receive Date: 20130522
  Receipt Date: 20130530
  Transmission Date: 20140414
  Serious: No
  Sender: FDA-Public Use
  Company Number: US-009507513-1305USA010733

PATIENT
  Age: 71 Year
  Sex: Female

DRUGS (3)
  1. ASMANEX TWISTHALER [Suspect]
     Indication: ASTHMA
     Dosage: 110 MICROGRAM, BID, ORAL INHALATION
     Route: 055
     Dates: start: 20130502
  2. ACTIVELLA [Concomitant]
  3. VENTOLIN (ALBUTEROL) [Concomitant]

REACTIONS (4)
  - Cough [Recovering/Resolving]
  - Wheezing [Recovering/Resolving]
  - Drug ineffective [Unknown]
  - Product quality issue [Unknown]
